FAERS Safety Report 9972993 (Version 2)
Quarter: 2014Q1

REPORT INFORMATION
  Report Type: Spontaneous
  Country: US (occurrence: US)
  Receive Date: 20140306
  Receipt Date: 20140317
  Transmission Date: 20141002
  Serious: Yes (Other)
  Sender: FDA-Public Use
  Company Number: US-PFIZER INC-2014062382

PATIENT
  Sex: Female

DRUGS (4)
  1. LYRICA [Suspect]
     Dosage: 300 MG, 2X/DAY
  2. LYRICA [Suspect]
     Dosage: 300 MG, 1X/DAY
  3. LYRICA [Suspect]
     Dosage: 200 MG, 2X/DAY
  4. LYRICA [Suspect]
     Dosage: 75 MG, 2X/DAY

REACTIONS (13)
  - Abasia [Unknown]
  - Local swelling [Not Recovered/Not Resolved]
  - Rash [Not Recovered/Not Resolved]
  - Pain [Not Recovered/Not Resolved]
  - Local swelling [Recovering/Resolving]
  - Influenza [Unknown]
  - Dehydration [Unknown]
  - Insomnia [Unknown]
  - Hyperhidrosis [Unknown]
  - Diarrhoea [Unknown]
  - Nausea [Unknown]
  - Eating disorder [Unknown]
  - Irritability [Unknown]
